FAERS Safety Report 7675758-9 (Version None)
Quarter: 2011Q3

REPORT INFORMATION
  Report Type: 
  Country: None (occurrence: None)
  Receive Date: 20110810
  Receipt Date: 20110802
  Transmission Date: 20111222
  Serious: Yes (Hospitalization)
  Sender: FDA-Public Use
  Company Number: US-ASTRAZENECA-2011SE46209

PATIENT
  Age: 65 Year
  Sex: Female

DRUGS (6)
  1. CLONIDINE [Suspect]
  2. AMLODIPINE [Suspect]
  3. LISINOPRIL [Suspect]
     Route: 048
  4. FUROSEMIDE [Suspect]
  5. HYDRALAZINE HCL [Concomitant]
  6. METOPROLOL TARTRATE [Suspect]

REACTIONS (4)
  - VISION BLURRED [None]
  - SINUS BRADYCARDIA [None]
  - DYSARTHRIA [None]
  - SINUS ARRHYTHMIA [None]
